FAERS Safety Report 22531802 (Version 1)
Quarter: 2023Q2

REPORT INFORMATION
  Report Type: Spontaneous
  Country: US (occurrence: None)
  Receive Date: 20230606
  Receipt Date: 20230606
  Transmission Date: 20230722
  Serious: No
  Sender: FDA-Public Use
  Company Number: None

PATIENT
  Sex: Female

DRUGS (22)
  1. CAPECITABINE [Suspect]
     Active Substance: CAPECITABINE
     Indication: Breast cancer female
     Dosage: OTHER QUANTITY : 3T;?FREQUENCY : TWICE A DAY;?OTHER ROUTE : PO 7D ON/7D OFF;?
     Route: 050
  2. CITALOPRAM [Concomitant]
     Active Substance: CITALOPRAM HYDROBROMIDE
  3. LANTUS [Concomitant]
     Active Substance: INSULIN GLARGINE
  4. LEVOTHYROXINE SODIUM [Concomitant]
     Active Substance: LEVOTHYROXINE SODIUM
  5. METOPROLOL [Concomitant]
  6. ONDANSETRON [Concomitant]
  7. ANASTROZOLE [Concomitant]
     Active Substance: ANASTROZOLE
  8. ACETAMINOPHEN [Concomitant]
  9. DOCUSATE [Concomitant]
     Active Substance: DOCUSATE
  10. GLYCOLAX [Concomitant]
     Active Substance: POLYETHYLENE GLYCOL 3350
  11. JARDIANCE [Concomitant]
     Active Substance: EMPAGLIFLOZIN
  12. MAGNESIUM OXIDE [Concomitant]
     Active Substance: MAGNESIUM OXIDE
  13. PROCHLORPERAZINE [Concomitant]
  14. SENNA [Concomitant]
     Active Substance: SENNA LEAF\SENNOSIDES\SENNOSIDES A AND B
  15. TRULICITY [Concomitant]
     Active Substance: DULAGLUTIDE
  16. ZOFRAN [Concomitant]
  17. OLANZAPINE [Concomitant]
  18. KLOR-CON [Concomitant]
  19. CEPHALEXIN [Concomitant]
  20. TRAZODONE [Concomitant]
     Active Substance: TRAZODONE HYDROCHLORIDE
  21. TRAZOSONE [Concomitant]
  22. CELEXA [Concomitant]
     Active Substance: CITALOPRAM HYDROBROMIDE

REACTIONS (2)
  - Breast cancer female [None]
  - Disease progression [None]
